FAERS Safety Report 10190562 (Version 1)
Quarter: 2014Q2

REPORT INFORMATION
  Report Type: Spontaneous
  Country: DE (occurrence: DE)
  Receive Date: 20140523
  Receipt Date: 20140523
  Transmission Date: 20141212
  Serious: Yes (Congenital Anomaly)
  Sender: FDA-Public Use
  Company Number: GXKR2014DE001951

PATIENT
  Sex: 0

DRUGS (5)
  1. LAMOTRIGINE [Suspect]
     Indication: EPILEPSY
     Dosage: 200 [MG/D ]
     Route: 064
     Dates: start: 20121208, end: 20130601
  2. FOLSAEURE [Concomitant]
     Indication: PROPHYLAXIS OF NEURAL TUBE DEFECT
     Dosage: 5 MG DAILY
     Route: 064
     Dates: start: 20121208, end: 20130529
  3. PENHEXAL [Concomitant]
     Indication: RESPIRATORY TRACT INFECTION
     Dosage: UNK UKN, UNK
     Route: 064
  4. MIFEGYNE [Concomitant]
     Indication: ABORTION INDUCED
     Dosage: UNK UKN, UNK
     Route: 064
     Dates: start: 20130529, end: 20130529
  5. CYTOTEC [Concomitant]
     Indication: ABORTION INDUCED
     Dosage: UNK UKN, UNK
     Route: 064
     Dates: start: 20130530, end: 20130530

REACTIONS (5)
  - Ventricular septal defect [Not Recovered/Not Resolved]
  - Congenital tricuspid valve atresia [Not Recovered/Not Resolved]
  - Congenital pulmonary valve atresia [Not Recovered/Not Resolved]
  - Double outlet right ventricle [Not Recovered/Not Resolved]
  - Patent ductus arteriosus [Not Recovered/Not Resolved]
